FAERS Safety Report 12711148 (Version 1)
Quarter: 2016Q3

REPORT INFORMATION
  Report Type: Report from Study
  Country: BE (occurrence: BE)
  Receive Date: 20160902
  Receipt Date: 20160902
  Transmission Date: 20161109
  Serious: Yes (Hospitalization)
  Sender: FDA-Public Use
  Company Number: BE-ABBVIE-16K-013-1715642-00

PATIENT
  Sex: Male

DRUGS (5)
  1. DUODOPA [Suspect]
     Active Substance: CARBIDOPA\LEVODOPA
     Dosage: DOSES CONTINUOUSLY MONITORED AND ADAPTED
     Route: 050
     Dates: start: 20130524, end: 20150715
  2. STALEVO [Concomitant]
     Active Substance: CARBIDOPA\ENTACAPONE\LEVODOPA
     Indication: PRODUCT USED FOR UNKNOWN INDICATION
     Dosage: FORM STRENGTH:50MG/12.5MG/200MG, 6/DAY AS RESCUE MEDICATION
  3. DUODOPA [Suspect]
     Active Substance: CARBIDOPA\LEVODOPA
     Dosage: AM= 2 ML; CD= 1.5 ML/H DURING 16 HRS; ED= 1 ML
     Route: 050
     Dates: start: 20150715
  4. STALEVO [Concomitant]
     Active Substance: CARBIDOPA\ENTACAPONE\LEVODOPA
     Dosage: FORM STRENGTH: 50MG/12.5MG/200MG, 6/DAY AS RESCUE MEDICATION
  5. DUODOPA [Suspect]
     Active Substance: CARBIDOPA\LEVODOPA
     Indication: PRODUCT USED FOR UNKNOWN INDICATION
     Dosage: AM= 2 ML; CD= 1.6 ML/H DURING 16 HRS; ED= 1 ML
     Route: 050
     Dates: start: 20130521, end: 20130524

REACTIONS (1)
  - Unintentional medical device removal [Unknown]
